FAERS Safety Report 5627671-6 (Version None)
Quarter: 2008Q1

REPORT INFORMATION
  Report Type: 
  Country: None (occurrence: None)
  Receive Date: 20080215
  Receipt Date: 20080207
  Transmission Date: 20080703
  Serious: Yes (Other)
  Sender: FDA-Public Use
  Company Number: US-GENENTECH-255206

PATIENT
  Sex: Female

DRUGS (1)
  1. AVASTIN [Suspect]
     Indication: CHOROIDAL NEOVASCULARISATION
     Dosage: 0.05 UNK, PRN
     Route: 031
     Dates: start: 20070507

REACTIONS (3)
  - VISUAL ACUITY REDUCED [None]
  - VITREOUS HAEMORRHAGE [None]
  - VITRITIS [None]
